FAERS Safety Report 4737722-9 (Version None)
Quarter: 2005Q3

REPORT INFORMATION
  Report Type: 
  Country: None (occurrence: None)
  Receive Date: 20050809
  Receipt Date: 20050623
  Transmission Date: 20060218
  Serious: No
  Sender: FDA-Public Use
  Company Number: US-GLAXOSMITHKLINE-A0564052A

PATIENT
  Age: 78 Year
  Sex: Female

DRUGS (5)
  1. COMMIT [Suspect]
  2. NICODERM CQ [Suspect]
  3. PREDNISONE [Concomitant]
  4. CRESTOR [Concomitant]
  5. ATACAND [Concomitant]

REACTIONS (4)
  - DRUG INEFFECTIVE [None]
  - DYSPEPSIA [None]
  - HICCUPS [None]
  - INSOMNIA [None]
